FAERS Safety Report 7735532-1 (Version None)
Quarter: 2011Q3

REPORT INFORMATION
  Report Type: 
  Country: None (occurrence: None)
  Receive Date: 20110907
  Receipt Date: 20110517
  Transmission Date: 20111222
  Serious: No
  Sender: FDA-Public Use
  Company Number: FR-GILEAD-2010-0031247

PATIENT
  Sex: Female
  Weight: 55 kg

DRUGS (2)
  1. VIREAD [Suspect]
     Indication: CHRONIC HEPATITIS
     Route: 048
     Dates: start: 20100427
  2. DESLORATADINE [Concomitant]
     Indication: HYPERSENSITIVITY
     Dates: start: 20100501, end: 20100630

REACTIONS (1)
  - PREGNANCY [None]
